FAERS Safety Report 18473265 (Version 15)
Quarter: 2023Q2

REPORT INFORMATION
  Report Type: Report from Study
  Country: US (occurrence: US)
  Receive Date: 20201106
  Receipt Date: 20230612
  Transmission Date: 20230721
  Serious: Yes (Hospitalization, Other)
  Sender: FDA-Public Use
  Company Number: US-SHIRE-US202012404

PATIENT
  Sex: Female

DRUGS (4)
  1. HUMAN IMMUNOGLOBULIN G [Suspect]
     Active Substance: HUMAN IMMUNOGLOBULIN G
     Indication: Primary immunodeficiency syndrome
     Dosage: UNK
     Route: 065
     Dates: end: 202302
  2. FASENRA [Concomitant]
     Active Substance: BENRALIZUMAB
     Dosage: UNK
  3. PREDNISONE [Concomitant]
     Active Substance: PREDNISONE
     Dosage: UNK
  4. BACTRIM [Concomitant]
     Active Substance: SULFAMETHOXAZOLE\TRIMETHOPRIM
     Dosage: UNK

REACTIONS (26)
  - Cataract [Unknown]
  - Bronchitis [Unknown]
  - Lumbar vertebral fracture [Unknown]
  - Cystic fibrosis [Unknown]
  - Procedural pain [Recovering/Resolving]
  - Bronchiectasis [Not Recovered/Not Resolved]
  - Pneumonia pseudomonal [Unknown]
  - Hypoaesthesia [Recovering/Resolving]
  - Gait disturbance [Recovering/Resolving]
  - Lung disorder [Unknown]
  - Gastrooesophageal reflux disease [Unknown]
  - Viral infection [Unknown]
  - Sinusitis [Unknown]
  - Hiatus hernia [Unknown]
  - COVID-19 [Recovering/Resolving]
  - Vocal cord disorder [Unknown]
  - Weight decreased [Unknown]
  - Wheezing [Unknown]
  - Epistaxis [Unknown]
  - Abdominal discomfort [Unknown]
  - Conjunctivitis [Unknown]
  - Influenza [Recovering/Resolving]
  - Anaemia [Unknown]
  - Cough [Recovering/Resolving]
  - Fatigue [Recovering/Resolving]
  - Inappropriate schedule of product administration [Unknown]
